FAERS Safety Report 6343240-7 (Version None)
Quarter: 2009Q3

REPORT INFORMATION
  Report Type: 
  Country: None (occurrence: None)
  Receive Date: 20090908
  Receipt Date: 20090825
  Transmission Date: 20100115
  Serious: Yes (Hospitalization)
  Sender: FDA-Public Use
  Company Number: PHHY2009FR35743

PATIENT
  Sex: Female

DRUGS (10)
  1. INIPOMP [Suspect]
     Dosage: 20 MG, QD
     Route: 048
     Dates: end: 20090722
  2. TAREG [Suspect]
     Dosage: UNK
     Route: 048
     Dates: end: 20090722
  3. EUPRESSYL [Suspect]
     Indication: HYPERTENSION
     Dosage: 120 MG DAILY
     Route: 048
     Dates: end: 20090722
  4. SIFROL [Suspect]
     Indication: RESTLESS LEGS SYNDROME
     Dosage: 0.36 MG DAILY
     Route: 048
     Dates: end: 20090722
  5. EFFERALGAN CODEINE [Suspect]
     Dosage: 3 DF DAILY
     Route: 048
     Dates: end: 20090722
  6. TAHOR [Suspect]
     Indication: HYPERCHOLESTEROLAEMIA
     Dosage: 20 MG DAILY
     Route: 048
     Dates: end: 20090722
  7. FORLAX [Concomitant]
     Dosage: 1 DF, UNK
  8. LEVOTHYROXINE SODIUM [Concomitant]
     Route: 048
  9. SPIRIVA [Concomitant]
  10. NOVOPULMON [Concomitant]

REACTIONS (8)
  - BLOOD PRESSURE INCREASED [None]
  - DIZZINESS [None]
  - GENERAL PHYSICAL HEALTH DETERIORATION [None]
  - HEADACHE [None]
  - HYPONATRAEMIA [None]
  - HYPOTENSION [None]
  - MENTAL IMPAIRMENT [None]
  - NAUSEA [None]
